FAERS Safety Report 6134390-9 (Version None)
Quarter: 2009Q1

REPORT INFORMATION
  Report Type: 
  Country: None (occurrence: None)
  Receive Date: 20090327
  Receipt Date: 20090319
  Transmission Date: 20090719
  Serious: Yes (Disabling, Other)
  Sender: FDA-Public Use
  Company Number: GB-JNJFOC-20090305216

PATIENT
  Age: 78 Year
  Sex: Male

DRUGS (2)
  1. ITRACONAZOLE [Suspect]
     Indication: BRONCHOPULMONARY ASPERGILLOSIS
     Route: 065
  2. SIMVASTATIN [Interacting]
     Indication: DRUG USE FOR UNKNOWN INDICATION
     Route: 065

REACTIONS (4)
  - ABASIA [None]
  - DRUG INTERACTION [None]
  - MYALGIA [None]
  - MYOPATHY [None]
